FAERS Safety Report 14692608 (Version 1)
Quarter: 2018Q1

REPORT INFORMATION
  Report Type: Spontaneous
  Country: CA (occurrence: CA)
  Receive Date: 20180329
  Receipt Date: 20180329
  Transmission Date: 20180509
  Serious: Yes (Hospitalization)
  Sender: FDA-Public Use
  Company Number: CA-ROCHE-2094908

PATIENT
  Sex: Female

DRUGS (9)
  1. SULFASALAZINE. [Concomitant]
     Active Substance: SULFASALAZINE
     Indication: RHEUMATOID ARTHRITIS
  2. ACTEMRA [Suspect]
     Active Substance: TOCILIZUMAB
     Indication: RHEUMATOID ARTHRITIS
     Route: 065
  3. METHOTREXATE SODIUM. [Suspect]
     Active Substance: METHOTREXATE SODIUM
     Indication: RHEUMATOID ARTHRITIS
     Route: 058
  4. RITUXAN [Suspect]
     Active Substance: RITUXIMAB
     Indication: RHEUMATOID ARTHRITIS
     Route: 042
  5. LEFLUNOMIDE. [Suspect]
     Active Substance: LEFLUNOMIDE
     Indication: RHEUMATOID ARTHRITIS
     Route: 065
  6. ADALIMUMAB [Suspect]
     Active Substance: ADALIMUMAB
     Indication: RHEUMATOID ARTHRITIS
     Route: 058
  7. ORENCIA [Suspect]
     Active Substance: ABATACEPT
     Indication: RHEUMATOID ARTHRITIS
     Route: 065
  8. METHOTREXATE SODIUM. [Suspect]
     Active Substance: METHOTREXATE SODIUM
     Route: 048
  9. ALENDRONATE SODIUM. [Concomitant]
     Active Substance: ALENDRONATE SODIUM
     Route: 065

REACTIONS (16)
  - Basal cell carcinoma [Recovered/Resolved]
  - Drug hypersensitivity [Recovered/Resolved]
  - Hypercalcaemia [Recovered/Resolved]
  - Panniculitis [Recovered/Resolved]
  - Drug effect incomplete [Recovered/Resolved]
  - Drug eruption [Recovered/Resolved]
  - Skin ulcer [Recovered/Resolved]
  - Drug ineffective [Unknown]
  - Ulcer [Recovered/Resolved]
  - Peripheral swelling [Recovered/Resolved]
  - Rash pruritic [Recovered/Resolved]
  - Rheumatoid arthritis [Recovered/Resolved]
  - Aspartate aminotransferase increased [Recovered/Resolved]
  - Erythema [Recovered/Resolved]
  - Alanine aminotransferase increased [Recovered/Resolved]
  - Skin necrosis [Recovered/Resolved]
